FAERS Safety Report 14094607 (Version 1)
Quarter: 2017Q4

REPORT INFORMATION
  Report Type: Spontaneous
  Country: GR (occurrence: GR)
  Receive Date: 20171016
  Receipt Date: 20171016
  Transmission Date: 20180321
  Serious: Yes (Other)
  Sender: FDA-Public Use
  Company Number: GR-ALLERGAN-1667078US

PATIENT
  Age: 65 Year
  Sex: Male

DRUGS (3)
  1. OZURDEX [Suspect]
     Active Substance: DEXAMETHASONE
     Indication: MACULAR OEDEMA
     Dosage: 0.7 MG, SINGLE
     Route: 031
  2. NEVANAC [Concomitant]
     Active Substance: NEPAFENAC
     Indication: CYSTOID MACULAR OEDEMA
     Route: 065
  3. MAXIDEX [Concomitant]
     Active Substance: DEXAMETHASONE
     Indication: CYSTOID MACULAR OEDEMA
     Dosage: UNK UNK, Q6HR
     Route: 065

REACTIONS (3)
  - Chorioretinopathy [Recovering/Resolving]
  - Visual impairment [Recovering/Resolving]
  - Subretinal fluid [Recovering/Resolving]
